FAERS Safety Report 10089675 (Version 1)
Quarter: 2014Q2

REPORT INFORMATION
  Report Type: Spontaneous
  Country: US (occurrence: None)
  Receive Date: 20140418
  Receipt Date: 20140418
  Transmission Date: 20141212
  Serious: No
  Sender: FDA-Public Use
  Company Number: None

PATIENT
  Age: 55 Year
  Sex: Male
  Weight: 90.72 kg

DRUGS (1)
  1. DULOXETINE [Suspect]
     Dosage: 1 TAB BID ORAL
     Route: 048
     Dates: start: 20140107, end: 20140204

REACTIONS (3)
  - Constipation [None]
  - Dysuria [None]
  - Rash [None]
